FAERS Safety Report 4495055-2 (Version None)
Quarter: 2004Q4

REPORT INFORMATION
  Report Type: 
  Country: None (occurrence: None)
  Receive Date: 20041108
  Receipt Date: 20041026
  Transmission Date: 20050328
  Serious: Yes (Hospitalization)
  Sender: FDA-Public Use
  Company Number: US-ABBOTT-04P-163-0278670-00

PATIENT
  Sex: Male
  Weight: 90.8 kg

DRUGS (8)
  1. DEPAKOTE [Suspect]
     Indication: SCHIZOPHRENIA
     Dosage: 500 MG IN AM AND 625 IN PM
     Route: 048
     Dates: start: 20030301, end: 20030501
  2. DEPAKOTE [Suspect]
     Indication: PSYCHOTIC DISORDER
     Route: 048
     Dates: start: 20030501, end: 20040201
  3. DEPAKOTE [Suspect]
     Route: 048
     Dates: start: 20040201, end: 20040601
  4. DEPAKOTE [Suspect]
     Route: 048
     Dates: start: 20040601, end: 20040801
  5. DEPAKOTE [Suspect]
     Route: 048
     Dates: start: 20040801
  6. DEPAKOTE [Suspect]
     Dates: start: 20040801
  7. RISPERIDONE [Concomitant]
     Indication: SCHIZOPHRENIA
  8. VENLAFAXINE HYDROCHLORIDE [Concomitant]
     Indication: DEPRESSION
     Route: 048

REACTIONS (7)
  - ACUTE PSYCHOSIS [None]
  - AGGRESSION [None]
  - ANGER [None]
  - CONFUSIONAL STATE [None]
  - HALLUCINATION, AUDITORY [None]
  - MENTAL STATUS CHANGES [None]
  - PARANOIA [None]
